FAERS Safety Report 5129781-9 (Version None)
Quarter: 2006Q4

REPORT INFORMATION
  Report Type: 
  Country: None (occurrence: None)
  Receive Date: 20061018
  Receipt Date: 20060405
  Transmission Date: 20070319
  Serious: Yes (Disabling)
  Sender: FDA-Public Use
  Company Number: US-SANOFI-SYNTHELABO-A03200602091

PATIENT
  Sex: Female

DRUGS (1)
  1. AMBIEN [Suspect]
     Indication: INSOMNIA
     Dosage: TAKES 1 1/2 TABLETS OF 10 MG
     Route: 048
     Dates: start: 19990101

REACTIONS (14)
  - AMNESIA [None]
  - DEPENDENCE [None]
  - DRUG ABUSER [None]
  - DRUG WITHDRAWAL SYNDROME [None]
  - EATING DISORDER [None]
  - GAIT DISTURBANCE [None]
  - HALLUCINATION [None]
  - IMPAIRED DRIVING ABILITY [None]
  - PAIN [None]
  - SLEEP TALKING [None]
  - SLEEP WALKING [None]
  - SOMNOLENCE [None]
  - TENDON INJURY [None]
  - WEIGHT INCREASED [None]
